FAERS Safety Report 21295602 (Version 2)
Quarter: 2022Q3

REPORT INFORMATION
  Report Type: Spontaneous
  Country: US (occurrence: US)
  Receive Date: 20220906
  Receipt Date: 20220914
  Transmission Date: 20221027
  Serious: Yes (Hospitalization)
  Sender: FDA-Public Use
  Company Number: US-ORGANON-O2209USA000175

PATIENT
  Age: 9 Year
  Sex: Male

DRUGS (3)
  1. ELOCON [Suspect]
     Active Substance: MOMETASONE FUROATE
     Indication: Rosacea
     Dosage: UNK, DAILY, PRESCRIBED FOR 14-DAY, CONTINUED FOR ABOUT 45 DAYS
  2. AZITHROMYCIN [Concomitant]
     Active Substance: AZITHROMYCIN
     Dosage: TOOK ONE DOSE
     Route: 048
  3. METRONIDAZOLE [Concomitant]
     Active Substance: METRONIDAZOLE
     Dosage: APPLIED ONCE
     Route: 061

REACTIONS (3)
  - Dermatitis acneiform [Recovering/Resolving]
  - Drug ineffective [Unknown]
  - Incorrect product administration duration [Unknown]
